FAERS Safety Report 5235871-2 (Version None)
Quarter: 2007Q1

REPORT INFORMATION
  Report Type: 
  Country: None (occurrence: None)
  Receive Date: 20061208
  Receipt Date: 20051230
  Transmission Date: 20070707
  Serious: Yes (Other)
  Sender: FDA-Public Use
  Company Number: 2006UW00016

PATIENT
  Age: 83 Year
  Sex: Female

DRUGS (3)
  1. CRESTOR [Suspect]
     Indication: BLOOD CHOLESTEROL INCREASED
     Dates: start: 20051101
  2. ALTACE [Concomitant]
  3. TOPROL-XL [Concomitant]

REACTIONS (2)
  - FLATULENCE [None]
  - FREQUENT BOWEL MOVEMENTS [None]
